FAERS Safety Report 4378411-2 (Version None)
Quarter: 2004Q2

REPORT INFORMATION
  Report Type: 
  Country: None (occurrence: None)
  Receive Date: 20040609
  Receipt Date: 20040602
  Transmission Date: 20050107
  Serious: No
  Sender: FDA-Public Use
  Company Number: 2004210499US

PATIENT
  Age: 74 Year
  Sex: Female
  Weight: 67.1 kg

DRUGS (6)
  1. BEXTRA [Suspect]
     Indication: OSTEOARTHRITIS
     Dosage: 10 MG, QD, ORAL
     Route: 048
     Dates: start: 20030101, end: 20030617
  2. PLAVIX [Concomitant]
  3. LIPITOR [Concomitant]
  4. ZETIA [Concomitant]
  5. PROTONIX [Concomitant]
  6. ASPIRINA INFANTIL [Concomitant]

REACTIONS (8)
  - ARTERIAL DISORDER [None]
  - BACK INJURY [None]
  - DRUG INEFFECTIVE [None]
  - FALL [None]
  - HAEMORRHAGE [None]
  - INADEQUATE ANALGESIA [None]
  - MEDICATION ERROR [None]
  - RIB FRACTURE [None]
